FAERS Safety Report 10032245 (Version 4)
Quarter: 2014Q4

REPORT INFORMATION
  Report Type: Spontaneous
  Country: JP (occurrence: JP)
  Receive Date: 20140324
  Receipt Date: 20141212
  Transmission Date: 20150528
  Serious: Yes (Death, Other)
  Sender: FDA-Public Use
  Company Number: JP-ALEXION PHARMACEUTICALS INC.-A201400852

PATIENT

DRUGS (4)
  1. URSO [Concomitant]
     Active Substance: URSODIOL
     Indication: GRAFT VERSUS HOST DISEASE
     Dosage: 300 MG, QD
     Route: 048
     Dates: start: 20131025, end: 20140307
  2. FK 506 [Concomitant]
     Active Substance: TACROLIMUS
     Indication: GRAFT VERSUS HOST DISEASE
     Dosage: 3.2 MG, QD
     Route: 048
     Dates: start: 20131025, end: 20140307
  3. PREDNISOLONE. [Concomitant]
     Active Substance: PREDNISOLONE
     Indication: GRAFT VERSUS HOST DISEASE
     Dosage: 5 MG, QD
     Route: 048
     Dates: start: 20131025, end: 20140307
  4. SOLIRIS [Suspect]
     Active Substance: ECULIZUMAB
     Indication: HAEMOLYTIC URAEMIC SYNDROME
     Dosage: 900 MG, QW
     Route: 042
     Dates: start: 20140226, end: 20140307

REACTIONS (1)
  - Pneumonia [Fatal]
